FAERS Safety Report 9208255 (Version 1)
Quarter: 2013Q2

REPORT INFORMATION
  Report Type: Spontaneous
  Country: US (occurrence: US)
  Receive Date: 20130403
  Receipt Date: 20130403
  Transmission Date: 20140414
  Serious: Yes (Hospitalization)
  Sender: FDA-Public Use
  Company Number: US-B.I. PHARMACEUTICALS,INC./RIDGEFIELD-2013-BI-08978YA

PATIENT
  Age: 60 Year
  Sex: Male
  Weight: 139 kg

DRUGS (44)
  1. TAMSULOSIN CAPSULES [Suspect]
     Indication: BENIGN PROSTATIC HYPERPLASIA
     Route: 048
     Dates: start: 201208
  2. CELECOXIB [Suspect]
     Indication: OSTEOARTHRITIS
     Route: 048
     Dates: start: 20100413, end: 20120913
  3. CELECOXIB [Suspect]
     Indication: RHEUMATOID ARTHRITIS
     Route: 048
  4. IBUPROFEN [Suspect]
     Indication: OSTEOARTHRITIS
     Route: 048
     Dates: start: 20100413, end: 20120913
  5. IBUPROFEN [Suspect]
     Indication: RHEUMATOID ARTHRITIS
     Route: 048
  6. NAPROXEN [Suspect]
     Indication: OSTEOARTHRITIS
     Route: 048
     Dates: start: 20100413, end: 20120913
  7. NAPROXEN [Suspect]
     Indication: RHEUMATOID ARTHRITIS
     Route: 048
  8. PLACEBO [Suspect]
     Indication: OSTEOARTHRITIS
     Route: 048
     Dates: start: 20100413, end: 20120913
  9. PLACEBO [Suspect]
     Indication: RHEUMATOID ARTHRITIS
     Route: 048
  10. LASIX [Suspect]
     Indication: CARDIAC FAILURE CONGESTIVE
     Route: 048
     Dates: start: 20120203
  11. LASIX [Suspect]
     Route: 048
  12. LASIX [Suspect]
     Route: 048
  13. COREG [Suspect]
     Indication: HYPERTENSION
     Route: 048
     Dates: start: 20120909
  14. COREG [Suspect]
     Route: 048
  15. COREG [Suspect]
     Route: 048
  16. ZESTRIL [Suspect]
     Indication: HYPERTENSION
     Route: 048
     Dates: start: 20120909
  17. ZESTRIL [Suspect]
     Route: 048
  18. ZESTRIL [Suspect]
     Route: 048
  19. NEXIUM (ESOMEPRAZOLE MAGNESIUM) [Concomitant]
     Indication: PROPHYLAXIS
     Dosage: 40 MG
     Route: 048
     Dates: start: 20100413, end: 20120913
  20. AMBIEN (ZOLPIDEM TARTRATE) [Concomitant]
     Indication: SLEEP DISORDER
     Route: 048
     Dates: start: 20100413, end: 20120913
  21. PROSCAR [Concomitant]
  22. VALIUM (DIAZEPAM) [Concomitant]
     Indication: ANXIETY
  23. HUMULIN R (INSULIN HUMAN) [Concomitant]
  24. DELTASON (PREDNISONE) [Concomitant]
  25. ROFLUMILAST (ROFLUMILAST) [Concomitant]
  26. FLONASE (FLUTICASONE PROPIONATE) [Concomitant]
     Indication: HYPERSENSITIVITY
  27. NIZORAL (KETOCONAZOLE) [Concomitant]
  28. PROAIR HFA (SALBUTAMOL SULFATE) [Concomitant]
     Indication: CHRONIC OBSTRUCTIVE PULMONARY DISEASE
  29. NIZORAL (KETOCONAZOLE) [Concomitant]
     Indication: PRURITUS
  30. SYNTHROID (LEVOTHYROID) [Concomitant]
     Indication: HYPOTHYROIDISM
  31. XYLOCAINE (LIDOCAINE HYDROCHLORIDE) [Concomitant]
     Indication: PAIN IN EXTREMITY
  32. XYLOCAINE (LIDOCAINE HYDROCHLORIDE) [Concomitant]
     Indication: NEUROPATHY PERIPHERAL
  33. DULERA IN (FORMOTEROL FUMARATE, MOMETASONE FUROATE) [Concomitant]
  34. REGLAN (METOCLOPRAMIDE) [Concomitant]
  35. DUONEB (IPRATROPIUM BROMIDE, SALBUTAMOL SULFATE) [Concomitant]
  36. PLAVIX (CLOPIDOGREL SULFATE) [Concomitant]
  37. CYMBALTA (DULOXETINE HYDROCHLORIDE) [Concomitant]
  38. SPIRIVA HANDINHALER (TIOTROPIUM BROMIDE) [Concomitant]
  39. ASPIRIN (ACETYLSALICYLIC ACID) [Concomitant]
  40. NORCO (HYDROCODONE BITARTRATE, PARACETAMOL) [Concomitant]
     Indication: PAIN
  41. CLARITIN (LORATADINE) [Concomitant]
     Indication: SEASONAL ALLERGY
  42. VYTORIN (EZETIMIBE, SIMVASTATIN) [Concomitant]
  43. CORDARONE (AMIODARONE HYDROCHLORIDE) [Concomitant]
  44. FISH OIL [Concomitant]

REACTIONS (1)
  - Hypotension [Recovered/Resolved]
